FAERS Safety Report 10489837 (Version 2)
Quarter: 2014Q4

REPORT INFORMATION
  Report Type: Spontaneous
  Country: US (occurrence: US)
  Receive Date: 20141002
  Receipt Date: 20141120
  Transmission Date: 20150528
  Serious: Yes (Hospitalization)
  Sender: FDA-Public Use
  Company Number: US-MALLINCKRODT-T201403616

PATIENT
  Age: 20 Year
  Sex: Male

DRUGS (3)
  1. GABLOFEN [Suspect]
     Active Substance: BACLOFEN
     Indication: MUSCLE SPASTICITY
     Dosage: 700 MCG/DAY
     Route: 037
  2. ARTANE [Concomitant]
     Active Substance: TRIHEXYPHENIDYL HYDROCHLORIDE
     Dosage: UNK
  3. GABLOFEN [Suspect]
     Active Substance: BACLOFEN
     Dosage: 450 MCG/DAY
     Route: 037

REACTIONS (6)
  - Overdose [Recovered/Resolved]
  - Incoherent [Recovered/Resolved]
  - Hypertonia [Recovered/Resolved]
  - Device breakage [Recovered/Resolved]
  - Vomiting [Recovered/Resolved]
  - Drug withdrawal syndrome [Recovered/Resolved]

NARRATIVE: CASE EVENT DATE: 20140909
